FAERS Safety Report 25467878 (Version 1)
Quarter: 2025Q2

REPORT INFORMATION
  Report Type: Report from Study
  Country: US (occurrence: US)
  Receive Date: 20250623
  Receipt Date: 20250623
  Transmission Date: 20250716
  Serious: Yes (Other)
  Sender: AMGEN
  Company Number: US-AMGEN-USASL2025034547

PATIENT
  Age: 75 Year
  Sex: Female

DRUGS (3)
  1. LUMAKRAS [Suspect]
     Active Substance: SOTORASIB
     Indication: Lung neoplasm malignant
     Dosage: 960 MILLIGRAM, QD (3 PILLS)
     Route: 065
     Dates: start: 20250219
  2. LUMAKRAS [Suspect]
     Active Substance: SOTORASIB
     Route: 065
  3. LUMAKRAS [Suspect]
     Active Substance: SOTORASIB
     Route: 065

REACTIONS (2)
  - Lung neoplasm malignant [Unknown]
  - Product use complaint [Unknown]

NARRATIVE: CASE EVENT DATE: 20250219
